FAERS Safety Report 5916044-4 (Version None)
Quarter: 2008Q4

REPORT INFORMATION
  Report Type: 
  Country: None (occurrence: None)
  Receive Date: 20081013
  Receipt Date: 20081006
  Transmission Date: 20090506
  Serious: Yes (Death, Hospitalization)
  Sender: FDA-Public Use
  Company Number: BR-BAYER-BR-2005-011600

PATIENT
  Age: 68 Year
  Sex: Female

DRUGS (1)
  1. BETAFERON [Suspect]
     Indication: MULTIPLE SCLEROSIS
     Route: 058
     Dates: start: 20050301, end: 20060201

REACTIONS (3)
  - ABDOMINAL PAIN [None]
  - ADVERSE EVENT [None]
  - DIARRHOEA [None]
